FAERS Safety Report 5623935-0 (Version None)
Quarter: 2008Q1

REPORT INFORMATION
  Report Type: 
  Country: None (occurrence: None)
  Receive Date: 20080207
  Receipt Date: 20080131
  Transmission Date: 20080703
  Serious: Yes (Hospitalization)
  Sender: FDA-Public Use
  Company Number: 2008-00580

PATIENT
  Age: 37 Year
  Sex: Male

DRUGS (2)
  1. MONODOX [Suspect]
     Indication: ACTINOMYCOSIS
     Dates: end: 20070101
  2. MONODOX [Suspect]
     Indication: LUNG INFECTION
     Dates: end: 20070101

REACTIONS (1)
  - HEPATITIS [None]
